FAERS Safety Report 4542435-2 (Version None)
Quarter: 2004Q4

REPORT INFORMATION
  Report Type: 
  Country: None (occurrence: None)
  Receive Date: 20041230
  Receipt Date: 20041222
  Transmission Date: 20050328
  Serious: Yes (Other)
  Sender: FDA-Public Use
  Company Number: CH-ABBOTT-04P-151-0284679-00

PATIENT
  Age: 36 Year
  Sex: Female

DRUGS (10)
  1. KALETRA [Suspect]
     Indication: DRUG USE FOR UNKNOWN INDICATION
     Dosage: 1064MG/264MG
     Route: 065
  2. METHADONE [Interacting]
     Indication: DRUG USE FOR UNKNOWN INDICATION
     Route: 065
  3. METHADONE [Interacting]
     Route: 065
  4. CHLORPROTHIXENE [Interacting]
     Indication: DRUG USE FOR UNKNOWN INDICATION
  5. EFAVIRENZ [Interacting]
     Indication: DRUG USE FOR UNKNOWN INDICATION
     Route: 065
  6. FLUCONAZOLE [Interacting]
     Indication: DRUG USE FOR UNKNOWN INDICATION
     Dosage: WEEKLY
     Route: 065
  7. FLUNITRAZEPAM [Interacting]
     Indication: DRUG USE FOR UNKNOWN INDICATION
     Route: 065
  8. MIANSERIN [Interacting]
     Indication: DRUG USE FOR UNKNOWN INDICATION
     Route: 065
  9. OXAZEPAM [Interacting]
     Indication: DRUG USE FOR UNKNOWN INDICATION
     Route: 065
  10. ZIDOVUDINE [Interacting]
     Indication: DRUG USE FOR UNKNOWN INDICATION
     Route: 065

REACTIONS (4)
  - DRUG INTERACTION [None]
  - ELECTROCARDIOGRAM QT CORRECTED INTERVAL PROLONGED [None]
  - TORSADE DE POINTES [None]
  - VENTRICULAR TACHYCARDIA [None]
